FAERS Safety Report 18553968 (Version 3)
Quarter: 2021Q1

REPORT INFORMATION
  Report Type: Spontaneous
  Country: GB (occurrence: GB)
  Receive Date: 20201127
  Receipt Date: 20210120
  Transmission Date: 20210419
  Serious: Yes (Death, Life-Threatening, Other)
  Sender: FDA-Public Use
  Company Number: GB-TEVA-2020-GB-1851934

PATIENT
  Age: 68 Year
  Sex: Male
  Weight: 95 kg

DRUGS (46)
  1. MELPHALAN. [Concomitant]
     Active Substance: MELPHALAN
     Indication: ILL-DEFINED DISORDER
  2. ALEMTUZUMAB [Concomitant]
     Active Substance: ALEMTUZUMAB
     Indication: TRANSPLANT
     Dosage: 30 MILLIGRAM DAILY; ONCE
     Route: 042
     Dates: start: 20200906, end: 20200907
  3. METFORMIN [Concomitant]
     Active Substance: METFORMIN HYDROCHLORIDE
     Indication: ILL-DEFINED DISORDER
  4. RAMIPRIL. [Concomitant]
     Active Substance: RAMIPRIL
     Indication: ILL-DEFINED DISORDER
  5. ONDANSETRON HYDROCHLORIDE. [Concomitant]
     Active Substance: ONDANSETRON HYDROCHLORIDE
     Indication: ILL-DEFINED DISORDER
     Dosage: 8 MILLIGRAM DAILY; TWICE A DAY/AS REQUIRED
     Route: 048
     Dates: start: 20200904
  6. ACICLOVIR [Concomitant]
     Active Substance: ACYCLOVIR
     Indication: INFECTION PROPHYLAXIS
     Dosage: 800 MILLIGRAM DAILY;
     Route: 048
     Dates: start: 20200902, end: 20200915
  7. CICLOSPORIN A [Concomitant]
     Active Substance: CYCLOSPORINE
     Indication: ILL-DEFINED DISORDER
     Route: 048
     Dates: start: 20200928, end: 20201013
  8. FUROSEMIDE. [Concomitant]
     Active Substance: FUROSEMIDE
     Dosage: AS REQUIRED
     Route: 042
     Dates: start: 20200909
  9. TAZOCIN [Concomitant]
     Active Substance: PIPERACILLIN SODIUM\TAZOBACTAM SODIUM
     Indication: FEBRILE NEUTROPENIA
     Dosage: 18 MILLIGRAM DAILY;
     Route: 048
     Dates: start: 20200905, end: 20200917
  10. TAZOCIN [Concomitant]
     Active Substance: PIPERACILLIN SODIUM\TAZOBACTAM SODIUM
     Dosage: 18 MILLIGRAM DAILY;
     Route: 042
     Dates: start: 20200905, end: 20200917
  11. GLICLAZIDE [Concomitant]
     Active Substance: GLICLAZIDE
     Indication: ILL-DEFINED DISORDER
  12. ALEMTUZUMAB [Concomitant]
     Active Substance: ALEMTUZUMAB
     Indication: ILL-DEFINED DISORDER
  13. CIPROFLOXACIN. [Concomitant]
     Active Substance: CIPROFLOXACIN
     Indication: PROPHYLAXIS
     Dosage: 500 MILLIGRAM DAILY;
     Route: 048
     Dates: start: 20200909, end: 20200915
  14. CIPROFLOXACIN. [Concomitant]
     Active Substance: CIPROFLOXACIN
     Indication: ILL-DEFINED DISORDER
  15. PABRINEX [Concomitant]
     Active Substance: ASCORBIC ACID\VITAMIN B COMPLEX
     Indication: ENTERAL NUTRITION
     Dosage: 2 PAIRDS
     Route: 042
     Dates: start: 20200915, end: 20200917
  16. PREDNISOLONE. [Concomitant]
     Active Substance: PREDNISOLONE
     Indication: ILL-DEFINED DISORDER
  17. NEOLAB COTRIMOXAZOLE [Concomitant]
     Indication: ILL-DEFINED DISORDER
  18. MYCOPHENOLATE MOFETIL. [Concomitant]
     Active Substance: MYCOPHENOLATE MOFETIL
     Indication: PROPHYLAXIS AGAINST GRAFT VERSUS HOST DISEASE
     Dosage: 2 GRAM DAILY;
     Route: 048
     Dates: start: 20201008
  19. MELPHALAN. [Concomitant]
     Active Substance: MELPHALAN
     Indication: TRANSPLANT
     Dosage: 290 MILLIGRAM DAILY; ONCE
     Route: 042
     Dates: start: 20200907, end: 20200907
  20. OMEPRAZOL [Concomitant]
     Active Substance: OMEPRAZOLE
     Indication: MUCOSAL INFLAMMATION
     Dosage: 20 MILLIGRAM DAILY;
     Route: 048
     Dates: start: 20200902
  21. MEROPENEM. [Concomitant]
     Active Substance: MEROPENEM
     Indication: CONFUSIONAL STATE
     Dosage: 3 GRAM DAILY;
     Route: 042
     Dates: start: 20201015, end: 20201019
  22. TEVA UK FLUDARABINE [Suspect]
     Active Substance: FLUDARABINE PHOSPHATE
     Route: 042
     Dates: start: 20201009, end: 20201026
  23. METFORMIN [Concomitant]
     Active Substance: METFORMIN HYDROCHLORIDE
     Indication: DIABETES MELLITUS
     Dosage: 500 MILLIGRAM DAILY;
     Route: 048
     Dates: start: 20200902, end: 20200911
  24. OMEPRAZOL [Concomitant]
     Active Substance: OMEPRAZOLE
     Indication: ILL-DEFINED DISORDER
  25. SALMETEROL/FLUTICASONE [Concomitant]
     Active Substance: FLUTICASONE PROPIONATE\SALMETEROL XINAFOATE
     Indication: ASTHMA
     Dosage: 2 PUFFS
     Route: 055
     Dates: start: 20200902
  26. MEROPENEM. [Concomitant]
     Active Substance: MEROPENEM
     Indication: ILL-DEFINED DISORDER
  27. LEVOFLOXACIN. [Concomitant]
     Active Substance: LEVOFLOXACIN
     Indication: PYREXIA
     Dosage: 500 MILLIGRAM DAILY;
     Route: 048
     Dates: start: 20200929, end: 20201009
  28. AMLODIPINE [Concomitant]
     Active Substance: AMLODIPINE BESYLATE
     Indication: HYPERTENSION
     Dosage: 5 MILLIGRAM DAILY;
     Route: 048
     Dates: start: 20200930, end: 20201007
  29. TEVA UK FLUDARABINE [Suspect]
     Active Substance: FLUDARABINE PHOSPHATE
     Indication: ALLOGENIC STEM CELL TRANSPLANTATION
     Dosage: 65 MILLIGRAM DAILY; PRESCRIBED FOR 5 DAYS
     Route: 042
     Dates: start: 20200902
  30. POSACONAZOLE [Concomitant]
     Active Substance: POSACONAZOLE
     Indication: INFECTION PROPHYLAXIS
     Dosage: 300 MILLIGRAM DAILY;
     Route: 048
     Dates: start: 20200909
  31. RAMIPRIL. [Concomitant]
     Active Substance: RAMIPRIL
     Indication: HYPERTENSION
     Dosage: 5 MILLIGRAM DAILY;
     Route: 048
     Dates: start: 20200902, end: 20200909
  32. LEVOFLOXACIN. [Concomitant]
     Active Substance: LEVOFLOXACIN
     Indication: ILL-DEFINED DISORDER
  33. PENICILLIN V [Concomitant]
     Active Substance: PENICILLIN V
     Indication: PROPHYLAXIS
     Dosage: 500 MILLIGRAM DAILY;
     Route: 048
     Dates: start: 20200928
  34. NEOLAB COTRIMOXAZOLE [Concomitant]
     Indication: PROPHYLAXIS
     Dosage: 1920 MILLIGRAM DAILY; SATURDAY AND SUNDAY ONLY
     Route: 048
     Dates: start: 20201003
  35. ONDANSETRON HYDROCHLORIDE. [Concomitant]
     Active Substance: ONDANSETRON HYDROCHLORIDE
     Indication: NAUSEA
     Dosage: 8 MILLIGRAM DAILY; TWICE A DAY/AS REQUIRED
     Route: 042
     Dates: start: 20200904
  36. CICLOSPORIN A [Concomitant]
     Active Substance: CYCLOSPORINE
     Indication: PROPHYLAXIS AGAINST GRAFT VERSUS HOST DISEASE
     Route: 042
     Dates: start: 20200907, end: 20200918
  37. FUROSEMIDE. [Concomitant]
     Active Substance: FUROSEMIDE
     Indication: FLUID OVERLOAD
     Dosage: AS REQUIRED
     Route: 048
     Dates: start: 20200909
  38. PREDNISOLONE. [Concomitant]
     Active Substance: PREDNISOLONE
     Indication: PROPHYLAXIS AGAINST GRAFT VERSUS HOST DISEASE
     Dosage: 40MG THEN VARIABLE
     Route: 048
     Dates: start: 20200918
  39. TEVA UK FLUDARABINE [Suspect]
     Active Substance: FLUDARABINE PHOSPHATE
     Route: 042
     Dates: start: 20200909, end: 20200909
  40. MYCOPHENOLATE MOFETIL. [Concomitant]
     Active Substance: MYCOPHENOLATE MOFETIL
     Indication: ILL-DEFINED DISORDER
     Dosage: 2 GRAM DAILY;
     Route: 042
     Dates: start: 20201008
  41. POSACONAZOLE [Concomitant]
     Active Substance: POSACONAZOLE
     Indication: ILL-DEFINED DISORDER
  42. ACICLOVIR [Concomitant]
     Active Substance: ACYCLOVIR
     Indication: ILL-DEFINED DISORDER
     Dosage: 24000 MILLIGRAM DAILY;
     Route: 042
     Dates: start: 20200915
  43. MEROPENEM. [Concomitant]
     Active Substance: MEROPENEM
     Indication: FEBRILE NEUTROPENIA
     Dosage: 3 GRAM DAILY;
     Route: 042
     Dates: start: 20200917, end: 20200924
  44. AMILORIDE HYDROCHLORIDE. [Concomitant]
     Active Substance: AMILORIDE HYDROCHLORIDE
     Indication: HYPOKALAEMIA
     Dosage: 10 MILLIGRAM DAILY;
     Route: 048
     Dates: start: 20200916, end: 20200922
  45. AMILORIDE HYDROCHLORIDE. [Concomitant]
     Active Substance: AMILORIDE HYDROCHLORIDE
     Indication: ILL-DEFINED DISORDER
  46. GLICLAZIDE [Concomitant]
     Active Substance: GLICLAZIDE
     Indication: DIABETES MELLITUS
     Dosage: 40 MILLIGRAM DAILY;
     Route: 048
     Dates: start: 20200921

REACTIONS (1)
  - Leukoencephalopathy [Fatal]

NARRATIVE: CASE EVENT DATE: 20201009
